FAERS Safety Report 9525387 (Version 1)
Quarter: 2013Q3

REPORT INFORMATION
  Report Type: Spontaneous
  Country: US (occurrence: US)
  Receive Date: 20130916
  Receipt Date: 20130916
  Transmission Date: 20140515
  Serious: No
  Sender: FDA-Public Use
  Company Number: US-BAYER-2013-109103

PATIENT
  Age: 59 Year
  Sex: Male

DRUGS (3)
  1. STAXYN (FDT/ODT) [Suspect]
     Indication: ERECTILE DYSFUNCTION
     Dosage: 10 MG, ONCE
     Route: 048
  2. METFORMIN [Concomitant]
  3. XANAX [Concomitant]

REACTIONS (3)
  - Flushing [Recovered/Resolved]
  - Wrong technique in drug usage process [None]
  - Drug ineffective [Recovered/Resolved]
